FAERS Safety Report 8334439-9 (Version None)
Quarter: 2012Q2

REPORT INFORMATION
  Report Type: 
  Country: None (occurrence: None)
  Receive Date: 20120503
  Receipt Date: 20120215
  Transmission Date: 20120825
  Serious: No
  Sender: FDA-Public Use
  Company Number: US-BAUSCH-2012BL001109

PATIENT
  Sex: Female

DRUGS (2)
  1. BABY SHAMPOO [Concomitant]
  2. LOTEMAX [Suspect]
     Indication: BLEPHARITIS

REACTIONS (1)
  - DRUG INEFFECTIVE [None]
